FAERS Safety Report 5908891-X (Version None)
Quarter: 2008Q4

REPORT INFORMATION
  Report Type: 
  Country: None (occurrence: None)
  Receive Date: 20081006
  Receipt Date: 20080929
  Transmission Date: 20090506
  Serious: Yes (Death)
  Sender: FDA-Public Use
  Company Number: US-AVENTIS-200815285EU

PATIENT
  Age: 70 Year
  Sex: Male

DRUGS (4)
  1. ENOXAPARIN SODIUM [Suspect]
     Indication: THROMBOSIS PROPHYLAXIS
     Route: 058
     Dates: start: 20080206, end: 20080209
  2. CEFALOTIN [Concomitant]
     Dates: start: 20080205, end: 20080208
  3. TRADOL [Concomitant]
     Dates: start: 20080204, end: 20080208
  4. RANITIDINE [Concomitant]
     Dates: start: 20080204, end: 20080208

REACTIONS (1)
  - MYOCARDIAL INFARCTION [None]
